FAERS Safety Report 7492870-8 (Version None)
Quarter: 2011Q2

REPORT INFORMATION
  Report Type: 
  Country: None (occurrence: None)
  Receive Date: 20110520
  Receipt Date: 20110509
  Transmission Date: 20111010
  Serious: No
  Sender: FDA-Public Use
  Company Number: US-BIOGENIDEC-2010BI045183

PATIENT
  Sex: Female

DRUGS (2)
  1. TYSABRI [Suspect]
     Indication: MULTIPLE SCLEROSIS
     Route: 042
     Dates: start: 20090918, end: 20101114
  2. TYSABRI [Suspect]
     Route: 042
     Dates: start: 20090112, end: 20090629

REACTIONS (1)
  - MULTIPLE SCLEROSIS RELAPSE [None]
